FAERS Safety Report 18304789 (Version 1)
Quarter: 2020Q3

REPORT INFORMATION
  Report Type: Other
  Country: TR (occurrence: TR)
  Receive Date: 20200924
  Receipt Date: 20200924
  Transmission Date: 20201103
  Serious: Yes (Other)
  Sender: FDA-Public Use
  Company Number: TR-ROCHE-2679845

PATIENT

DRUGS (2)
  1. VEMURAFENIB. [Suspect]
     Active Substance: VEMURAFENIB
     Indication: METASTATIC MALIGNANT MELANOMA
     Dosage: FOR 21 DAYS, FOLLOWED BY 7 DAYS OFF TREATMENT
     Route: 065
  2. COBIMETINIB. [Suspect]
     Active Substance: COBIMETINIB
     Indication: METASTATIC MALIGNANT MELANOMA
     Dosage: FOR 21 DAYS, FOLLOWED BY 7 DAYS OFF TREATMENT
     Route: 065

REACTIONS (11)
  - Alanine aminotransferase increased [Unknown]
  - Aspartate aminotransferase increased [Unknown]
  - Proteinuria [Unknown]
  - Photosensitivity reaction [Unknown]
  - Rash [Unknown]
  - Hyperkeratosis [Unknown]
  - Blood creatinine increased [Unknown]
  - Arthralgia [Unknown]
  - Anaemia [Unknown]
  - Diarrhoea [Unknown]
  - Chorioretinopathy [Unknown]
